FAERS Safety Report 10219883 (Version 1)
Quarter: 2014Q1

REPORT INFORMATION
  Report Type: Spontaneous
  Country: US (occurrence: None)
  Receive Date: 20140306
  Receipt Date: 20140306
  Transmission Date: 20141002
  Serious: Yes (Other)
  Sender: FDA-Public Use
  Company Number: 163-21880-09010419

PATIENT
  Age: 56 Year
  Sex: Female
  Weight: 68 kg

DRUGS (12)
  1. REVLIMID [Suspect]
     Indication: MYELODYSPLASTIC SYNDROME
     Route: 048
     Dates: start: 200702
  2. SYNTHROID (LEVOTHYROXINE SODIUM) (TABLETS) [Concomitant]
  3. DIAZEPAM (DIAZEPAM) (TABLETS) [Concomitant]
  4. FLOVENT (FLUTICASONE PROPIONATE) [Concomitant]
  5. ALBUTEROL (SALBUTAMOL) (SOLUTION) [Concomitant]
  6. LOSARTAN POTASSIUM (LOSARTAN POTASSIUM) (TABLETS) [Concomitant]
  7. TRIAMTERENE/HCTZ (DYAZIDE) (CAPSULES) [Concomitant]
  8. FLUTICASONE (SLUTICASONE) (SPRAY) [Concomitant]
  9. MIRTAZAPINE (MIRTAZAPINE) (TABLETS) [Concomitant]
  10. OMEPRAZOLE (OMEPRAZOLE) (TABLETS) [Concomitant]
  11. CYCLOBENZAPRINE (CYCLOBENZAPRINE) (TABLETS) [Concomitant]
  12. FLONASE (FLUTICASONE PROPIONATE) (SPRAY) [Concomitant]

REACTIONS (2)
  - Thrombosis [None]
  - Productive cough [None]
